FAERS Safety Report 23173004 (Version 1)
Quarter: 2023Q4

REPORT INFORMATION
  Report Type: Spontaneous
  Country: None (occurrence: CA)
  Receive Date: 20231110
  Receipt Date: 20231110
  Transmission Date: 20240110
  Serious: Yes (Life-Threatening, Other)
  Sender: FDA-Public Use
  Company Number: CA-B.Braun Medical Inc.-2148109

PATIENT
  Age: 60 Year
  Sex: Male

DRUGS (1)
  1. HEPARIN SODIUM IN DEXTROSE [Suspect]
     Active Substance: HEPARIN SODIUM
     Route: 042

REACTIONS (7)
  - Cardioversion [None]
  - Demyelinating polyneuropathy [None]
  - Drug ineffective [None]
  - Hypotension [None]
  - Resuscitation [None]
  - Suspected product quality issue [None]
  - Ventricular fibrillation [None]
